FAERS Safety Report 10070987 (Version 1)
Quarter: 2014Q2

REPORT INFORMATION
  Report Type: Spontaneous
  Country: CN (occurrence: CN)
  Receive Date: 20140410
  Receipt Date: 20140410
  Transmission Date: 20141212
  Serious: Yes (Other)
  Sender: FDA-Public Use
  Company Number: CN-GLAXOSMITHKLINE-B0981023A

PATIENT
  Age: 45 Year
  Sex: Male

DRUGS (2)
  1. HEPTODIN [Suspect]
     Indication: CHRONIC HEPATITIS B
     Dosage: 1TAB PER DAY
     Route: 048
     Dates: start: 201303
  2. HEPSERA [Suspect]
     Indication: CHRONIC HEPATITIS B
     Dosage: 1TAB PER DAY
     Route: 048
     Dates: start: 2011

REACTIONS (3)
  - Hepatitis B DNA increased [Recovered/Resolved]
  - Drug ineffective [Unknown]
  - Product quality issue [Unknown]
